FAERS Safety Report 6785528-1 (Version None)
Quarter: 2010Q2

REPORT INFORMATION
  Report Type: 
  Country: None (occurrence: None)
  Receive Date: 20100623
  Receipt Date: 20100115
  Transmission Date: 20101027
  Serious: Yes (Other)
  Sender: FDA-Public Use
  Company Number: US-ASTRAZENECA-2009SE20943

PATIENT
  Age: 626 Month
  Sex: Female
  Weight: 95.7 kg

DRUGS (8)
  1. SEROQUEL [Suspect]
     Indication: SLEEP DISORDER
     Route: 048
     Dates: start: 20060101
  2. SEROQUEL [Suspect]
     Indication: BIPOLAR DISORDER
     Route: 048
     Dates: start: 20060101
  3. AMITRIPTYLINE [Concomitant]
     Dates: start: 20070821
  4. METOPROLOL TARTRATE [Concomitant]
     Dates: start: 20070821
  5. TRAZODONE HYDROCHLORIDE [Concomitant]
     Dates: start: 20071109
  6. GABAPENTIN [Concomitant]
     Dates: start: 20080205
  7. AVANDIA [Concomitant]
     Dates: start: 20090422
  8. NORTRIPTYLINE [Concomitant]
     Dates: start: 20070913

REACTIONS (2)
  - HERNIA [None]
  - TYPE 2 DIABETES MELLITUS [None]
